FAERS Safety Report 15127166 (Version 1)
Quarter: 2018Q3

REPORT INFORMATION
  Report Type: Spontaneous
  Country: FR (occurrence: FR)
  Receive Date: 20180710
  Receipt Date: 20180710
  Transmission Date: 20181010
  Serious: Yes (Hospitalization)
  Sender: FDA-Public Use
  Company Number: PHHY2018FR038753

PATIENT
  Age: 46 Year
  Sex: Female
  Weight: 66 kg

DRUGS (6)
  1. ATURGYL [Concomitant]
     Active Substance: FENOXAZOLINE HYDROCHLORIDE
     Indication: RHINITIS ALLERGIC
     Dosage: UNK
     Route: 045
  2. RELPAX [Concomitant]
     Active Substance: ELETRIPTAN HYDROBROMIDE
     Indication: MIGRAINE
     Dosage: UNK
     Route: 048
  3. CODOLIPRANE [Concomitant]
     Active Substance: ACETAMINOPHEN\CODEINE PHOSPHATE
     Indication: INFLUENZA
     Dosage: UNK
     Route: 048
  4. MELODIA [Concomitant]
     Active Substance: ETHINYL ESTRADIOL\GESTODENE
     Indication: CONTRACEPTION
     Dosage: UNK
     Route: 048
  5. IBUPROFEN. [Suspect]
     Active Substance: IBUPROFEN
     Indication: INFLUENZA
     Dosage: UNK
     Route: 048
  6. LAMALINE (ACETAMINOPHEN\CAFFEINE\OPIUM) [Concomitant]
     Active Substance: ACETAMINOPHEN\CAFFEINE\OPIUM
     Indication: INFLUENZA
     Dosage: UNK
     Route: 048

REACTIONS (3)
  - Pneumonia [Recovering/Resolving]
  - Infectious pleural effusion [Recovering/Resolving]
  - Streptococcal infection [Recovering/Resolving]

NARRATIVE: CASE EVENT DATE: 201803
